FAERS Safety Report 4918581-8 (Version None)
Quarter: 2006Q1

REPORT INFORMATION
  Report Type: 
  Country: None (occurrence: None)
  Receive Date: 20060222
  Receipt Date: 20060214
  Transmission Date: 20060701
  Serious: Yes (Other)
  Sender: FDA-Public Use
  Company Number: PHEH2006US02192

PATIENT

DRUGS (1)
  1. FOCALIN [Suspect]

REACTIONS (1)
  - APLASTIC ANAEMIA [None]
